FAERS Safety Report 9450234 (Version 1)
Quarter: 2013Q3

REPORT INFORMATION
  Report Type: Report from Study
  Country: IT (occurrence: IT)
  Receive Date: 20130809
  Receipt Date: 20130809
  Transmission Date: 20140515
  Serious: Yes (Death)
  Sender: FDA-Public Use
  Company Number: IT-SANOFI-AVENTIS-2013SA079825

PATIENT
  Sex: 0

DRUGS (3)
  1. FLUOROURACIL [Suspect]
     Indication: OESOPHAGEAL CARCINOMA
     Dosage: FORM: CONTINUOUS INFUSION, GIVEN ON DAY 1 AND 21
     Route: 065
  2. CISPLATIN [Suspect]
     Indication: OESOPHAGEAL CARCINOMA
     Dosage: GIVEN ON DAY 1,8,15,28,35 AND 42
     Route: 065
  3. TAXOTERE [Suspect]
     Indication: OESOPHAGEAL CARCINOMA
     Dosage: GIVEN ON DAY 1,8,15,28,35 AND 42
     Route: 065

REACTIONS (1)
  - Toxicity to various agents [Fatal]
